FAERS Safety Report 4318571-2 (Version None)
Quarter: 2004Q1

REPORT INFORMATION
  Report Type: 
  Country: None (occurrence: None)
  Receive Date: 20040316
  Receipt Date: 20040316
  Transmission Date: 20041129
  Serious: Yes (Other)
  Sender: FDA-Public Use
  Company Number: None

PATIENT
  Age: 45 Year
  Sex: Female
  Weight: 54.5 kg

DRUGS (1)
  1. ISOVUE-128 [Suspect]
     Indication: NUCLEAR MAGNETIC RESONANCE IMAGING
     Dosage: 130 MG IV
     Route: 042
     Dates: start: 20040217

REACTIONS (1)
  - SNEEZING [None]
